FAERS Safety Report 16733476 (Version 1)
Quarter: 2019Q3

REPORT INFORMATION
  Report Type: Spontaneous
  Country: GB (occurrence: GB)
  Receive Date: 20190823
  Receipt Date: 20190823
  Transmission Date: 20191005
  Serious: Yes (Hospitalization)
  Sender: FDA-Public Use
  Company Number: GB-TEVA-2019-GB-1095335

PATIENT
  Age: 60 Year
  Sex: Female

DRUGS (1)
  1. LISINOPRIL AND HYDROCHLOROTHIAZIDE [Suspect]
     Active Substance: HYDROCHLOROTHIAZIDE\LISINOPRIL
     Indication: HYPERTENSION
     Dosage: 10MG/12.5MG
     Route: 048

REACTIONS (6)
  - Nausea [Unknown]
  - Abdominal pain [Unknown]
  - Hepatitis viral [Unknown]
  - Chromaturia [Unknown]
  - Faeces pale [Unknown]
  - Jaundice [Unknown]
